FAERS Safety Report 5843442-X (Version None)
Quarter: 2008Q3

REPORT INFORMATION
  Report Type: 
  Country: None (occurrence: None)
  Receive Date: 20080813
  Receipt Date: 20080807
  Transmission Date: 20090109
  Serious: Yes (Hospitalization)
  Sender: FDA-Public Use
  Company Number: BE-WATSON-2008-04770

PATIENT
  Age: 73 Year
  Sex: Female

DRUGS (6)
  1. FIORINAL [Suspect]
     Indication: CEREBROVASCULAR OPERATION
     Dosage: 250 MG, FOR 1 DAY
     Route: 042
  2. FIORINAL [Suspect]
     Dosage: 100 MG, SINGLE
     Route: 065
  3. TICLOPIDINE HCL [Suspect]
     Indication: CEREBROVASCULAR OPERATION
     Dosage: 250 MG, UNK
     Route: 048
  4. ENOXAPARIN SODIUM [Suspect]
     Indication: CEREBROVASCULAR OPERATION
     Dosage: 40 MG, FOR 1 DAY
     Route: 058
  5. HYPERBARIC BUPIVACAINE [Concomitant]
     Indication: SPINAL ANAESTHESIA
     Dosage: 12.5 MG, UNK
     Route: 037
  6. SUFENTANIL CITRATE [Concomitant]
     Indication: SPINAL ANAESTHESIA
     Dosage: 3 UG, UNK
     Route: 037

REACTIONS (2)
  - SPINAL HAEMATOMA [None]
  - SUBARACHNOID HAEMORRHAGE [None]
